FAERS Safety Report 6699779-8 (Version None)
Quarter: 2010Q2

REPORT INFORMATION
  Report Type: 
  Country: None (occurrence: None)
  Receive Date: 20100428
  Receipt Date: 20100420
  Transmission Date: 20101027
  Serious: Yes (Other)
  Sender: FDA-Public Use
  Company Number: FR-JNJFOC-20100405483

PATIENT
  Age: 14 Year
  Sex: Male

DRUGS (3)
  1. CONCERTA [Suspect]
     Indication: DRUG USE FOR UNKNOWN INDICATION
     Route: 048
  2. CONCERTA [Suspect]
     Route: 048
  3. CONCERTA [Suspect]
     Route: 048

REACTIONS (3)
  - BLOOD BILIRUBIN INCREASED [None]
  - FATIGUE [None]
  - JAUNDICE [None]
